FAERS Safety Report 8956381 (Version 1)
Quarter: 2012Q4

REPORT INFORMATION
  Report Type: 
  Country: US (occurrence: US)
  Receive Date: 20121210
  Receipt Date: 20121210
  Transmission Date: 20130627
  Serious: Yes (Hospitalization)
  Sender: FDA-Public Use
  Company Number: US-BAYER-2012-127135

PATIENT
  Age: 18 Year
  Weight: 57 kg

DRUGS (6)
  1. YAZ [Suspect]
     Indication: ACNE
     Dosage: UNK
     Dates: start: 200611, end: 20070430
  2. YAZ [Suspect]
     Indication: PREMENSTRUAL SYNDROME
  3. MIGRAINE MEDICATIONS [Concomitant]
  4. VITAMIN C [Concomitant]
  5. NSAID^S [Concomitant]
  6. ANTIBIOTICS [Concomitant]

REACTIONS (10)
  - Pulmonary embolism [None]
  - Chest pain [None]
  - Palpitations [None]
  - Dyspnoea [None]
  - Syncope [None]
  - Pulmonary embolism [None]
  - Pulmonary embolism [None]
  - Pulmonary artery thrombosis [None]
  - Pulmonary artery thrombosis [None]
  - Pulmonary embolism [None]
